FAERS Safety Report 15264126 (Version 1)
Quarter: 2018Q3

REPORT INFORMATION
  Report Type: Spontaneous
  Country: US (occurrence: US)
  Receive Date: 20180810
  Receipt Date: 20180810
  Transmission Date: 20181010
  Serious: No
  Sender: FDA-Public Use
  Company Number: CN-ASTRAZENECA-2018SF01246

PATIENT
  Age: 52 Year
  Sex: Female
  Weight: 100 kg

DRUGS (18)
  1. CARVEDILOL. [Suspect]
     Active Substance: CARVEDILOL
     Indication: HEART RATE ABNORMAL
     Dosage: 12.5 MG, 2X/DAY (12.5 MG, TABLET, ORALLY, TWICE A DAY MORNING AND NIGHT)
     Route: 048
  2. RANITIDINE. [Suspect]
     Active Substance: RANITIDINE
     Indication: BARRETT^S OESOPHAGUS
     Route: 048
  3. GABAPENTIN. [Suspect]
     Active Substance: GABAPENTIN
     Indication: DIABETIC NEUROPATHY
     Route: 048
  4. GEMFIBROZIL. [Suspect]
     Active Substance: GEMFIBROZIL
     Indication: BLOOD CHOLESTEROL ABNORMAL
     Route: 048
  5. BUPROPION. [Concomitant]
     Active Substance: BUPROPION
     Indication: DEPRESSION
     Dosage: 300 MG, 1X/DAY (300 MG, ONCE A DAY IN THE MORNING)
  6. BUPROPION. [Concomitant]
     Active Substance: BUPROPION
     Indication: ANXIETY
     Dosage: 300 MG, 1X/DAY (300 MG, ONCE A DAY IN THE MORNING)
  7. PAROXETINE. [Concomitant]
     Active Substance: PAROXETINE
     Indication: POST-TRAUMATIC STRESS DISORDER
     Dosage: 20 MG, 1X/DAY (20 MG, ONCE A DAY IN THE MORNING)
  8. LEVOTHYROXINE. [Concomitant]
     Active Substance: LEVOTHYROXINE
     Indication: HYPOTHYROIDISM
     Dosage: 88 UG, 1X/DAY
  9. NEXIUM 24HR [Suspect]
     Active Substance: ESOMEPRAZOLE MAGNESIUM
     Indication: BARRETT^S OESOPHAGUS
     Route: 048
  10. VERAPAMIL [Concomitant]
     Active Substance: VERAPAMIL HYDROCHLORIDE
     Indication: HYPERTENSION
     Dosage: 360 MG, 1X/DAY (360 MG, ONCE A DAY IN THE MORNING)
  11. LIOTHYRONINE [Concomitant]
     Active Substance: LIOTHYRONINE
     Indication: HYPOTHYROIDISM
     Dosage: 50 UG, 1X/DAY (50 MCG, ONCE A DAY IN THE MORNING)
  12. CELEBREX [Suspect]
     Active Substance: CELECOXIB
     Indication: LIMB INJURY
     Route: 048
  13. DIPHENHYDRAMINE. [Suspect]
     Active Substance: DIPHENHYDRAMINE
     Indication: HYPERSENSITIVITY
     Dosage: 25 MG, 1X/DAY (25 MG, TABLET, ORALLY, ONCE A DAY AT NIGHT)
     Route: 048
  14. VITAMIN D2 [Concomitant]
     Active Substance: ERGOCALCIFEROL
     Indication: VITAMIN D DECREASED
     Dosage: 1.25 MG, WEEKLY (1.25 MG, ONCE A WEEK ON THURSDAY)
  15. GLIMEPIRIDE. [Concomitant]
     Active Substance: GLIMEPIRIDE
     Indication: DIABETES MELLITUS
     Dosage: 4 MG, 2X/DAY
  16. VERAPAMIL [Concomitant]
     Active Substance: VERAPAMIL HYDROCHLORIDE
     Indication: HEART RATE INCREASED
     Dosage: 360 MG, 1X/DAY (360 MG, ONCE A DAY IN THE MORNING)
  17. LORATADINE. [Concomitant]
     Active Substance: LORATADINE
     Indication: HYPERSENSITIVITY
     Dosage: 10 MG, 1X/DAY (10 MG, ONCE A DAY IN THE MORNING)
  18. INVOKANA [Concomitant]
     Active Substance: CANAGLIFLOZIN
     Indication: TYPE 2 DIABETES MELLITUS
     Dosage: 200 MG, 1X/DAY (100 MG, 2 TABLETS EVERY MORNING)

REACTIONS (3)
  - Hunger [Recovering/Resolving]
  - Sleep disorder [Recovered/Resolved]
  - Euphoric mood [Unknown]
